FAERS Safety Report 16852110 (Version 1)
Quarter: 2019Q3

REPORT INFORMATION
  Report Type: Spontaneous
  Country: US (occurrence: US)
  Receive Date: 20190925
  Receipt Date: 20190925
  Transmission Date: 20191005
  Serious: Yes (Hospitalization)
  Sender: FDA-Public Use
  Company Number: PHHY2019US219057

PATIENT
  Age: 17 Year
  Sex: Male

DRUGS (2)
  1. OLANZAPINE. [Suspect]
     Active Substance: OLANZAPINE
     Indication: INTENTIONAL SELF-INJURY
     Dosage: 5 MG, UNK (68 TABLETS, 340 MG TOTAL)
     Route: 065
  2. GUANFACINE. [Suspect]
     Active Substance: GUANFACINE
     Indication: INTENTIONAL SELF-INJURY
     Dosage: 3 MG, UNK, (63 TABLETS, 189 MG TOTAL)
     Route: 065

REACTIONS (13)
  - Orthostatic hypotension [Unknown]
  - Sinus arrest [Recovered/Resolved]
  - Somnolence [Unknown]
  - Agitation [Unknown]
  - Disorientation [Recovered/Resolved]
  - Hypotension [Unknown]
  - Hallucination [Unknown]
  - Intentional overdose [Unknown]
  - Presyncope [Unknown]
  - Dysarthria [Unknown]
  - Suicide attempt [Unknown]
  - Altered state of consciousness [Unknown]
  - Bradycardia [Recovered/Resolved]
